FAERS Safety Report 10498524 (Version 1)
Quarter: 2014Q4

REPORT INFORMATION
  Report Type: Spontaneous
  Country: US (occurrence: US)
  Receive Date: 20141006
  Receipt Date: 20141006
  Transmission Date: 20150528
  Serious: Yes (Other)
  Sender: FDA-Public Use
  Company Number: US-009507513-1409USA014976

PATIENT
  Sex: Female

DRUGS (1)
  1. NEXPLANON [Suspect]
     Active Substance: ETONOGESTREL
     Indication: CONTRACEPTION
     Dosage: 1 DF(ROD), ONCE
     Route: 059

REACTIONS (5)
  - Suicidal ideation [Unknown]
  - Weight increased [Unknown]
  - Vaginal haemorrhage [Unknown]
  - Mood swings [Unknown]
  - Loss of libido [Unknown]
